FAERS Safety Report 20186444 (Version 1)
Quarter: 2021Q4

REPORT INFORMATION
  Report Type: Spontaneous
  Country: US (occurrence: US)
  Receive Date: 20211215
  Receipt Date: 20211215
  Transmission Date: 20220303
  Serious: No
  Sender: FDA-Public Use
  Company Number: US-RECKITT BENCKISER HEALTHCARE INT LIMITED-RB-95297-2021

PATIENT
  Sex: Male

DRUGS (2)
  1. DELSYM NIGHT TIME COUGH AND COLD [Suspect]
     Active Substance: DIPHENHYDRAMINE HYDROCHLORIDE\PHENYLEPHRINE HYDROCHLORIDE
     Indication: Cough
     Dosage: UNK
     Route: 065
     Dates: start: 2021
  2. DELSYM NIGHT TIME COUGH AND COLD [Suspect]
     Active Substance: DIPHENHYDRAMINE HYDROCHLORIDE\PHENYLEPHRINE HYDROCHLORIDE
     Indication: Nasopharyngitis

REACTIONS (2)
  - Drug ineffective [Not Recovered/Not Resolved]
  - Expired product administered [Unknown]
